FAERS Safety Report 17748960 (Version 1)
Quarter: 2020Q2

REPORT INFORMATION
  Report Type: Spontaneous
  Country: US (occurrence: US)
  Receive Date: 20200506
  Receipt Date: 20200506
  Transmission Date: 20200714
  Serious: Yes (Hospitalization, Other)
  Sender: FDA-Public Use
  Company Number: US-DRREDDYS-USA/USA/20/0122676

PATIENT
  Age: 3 Year
  Sex: Female

DRUGS (1)
  1. TETRABENAZINE TABLETS [Suspect]
     Active Substance: TETRABENAZINE
     Indication: CHOREA
     Route: 065

REACTIONS (1)
  - Drug ineffective [Unknown]
